FAERS Safety Report 15498901 (Version 1)
Quarter: 2018Q4

REPORT INFORMATION
  Report Type: Spontaneous
  Country: IL (occurrence: IL)
  Receive Date: 20181015
  Receipt Date: 20181015
  Transmission Date: 20190205
  Serious: Yes (Death)
  Sender: FDA-Public Use
  Company Number: IL-ROCHE-2194707

PATIENT
  Age: 74 Year
  Sex: Male

DRUGS (1)
  1. ALECENSA [Suspect]
     Active Substance: ALECTINIB HYDROCHLORIDE
     Indication: LUNG ADENOCARCINOMA
     Route: 065
     Dates: start: 201809

REACTIONS (4)
  - Hypotension [Fatal]
  - Pneumonia [Fatal]
  - Seizure [Fatal]
  - Atelectasis [Fatal]

NARRATIVE: CASE EVENT DATE: 201809
